FAERS Safety Report 7272072-0 (Version None)
Quarter: 2011Q1

REPORT INFORMATION
  Report Type: 
  Country: None (occurrence: None)
  Receive Date: 20110203
  Receipt Date: 20110124
  Transmission Date: 20110831
  Serious: Yes (Hospitalization)
  Sender: FDA-Public Use
  Company Number: DK-NOVOPROD-322114

PATIENT
  Age: 84 Year
  Sex: Female

DRUGS (2)
  1. VICTOZA [Suspect]
     Indication: PRODUCT USED FOR UNKNOWN INDICATION
     Dosage: UNK
     Route: 058
     Dates: start: 20100910
  2. VICTOZA [Suspect]
     Dosage: 1.2 MG, QD
     Route: 058
     Dates: end: 20100921

REACTIONS (8)
  - RASH [None]
  - CHEST DISCOMFORT [None]
  - ANGIOEDEMA [None]
  - NAUSEA [None]
  - HEADACHE [None]
  - THROAT TIGHTNESS [None]
  - ABDOMINAL DISCOMFORT [None]
  - DIARRHOEA [None]
